FAERS Safety Report 4862153-0 (Version None)
Quarter: 2005Q4

REPORT INFORMATION
  Report Type: 
  Country: None (occurrence: None)
  Receive Date: 20051130
  Receipt Date: 20041104
  Transmission Date: 20060501
  Serious: Yes (Other)
  Sender: FDA-Public Use
  Company Number: PHEH2004US11942

PATIENT
  Age: 33 Year
  Sex: Female
  Weight: 68.5 kg

DRUGS (3)
  1. LAMISIL [Suspect]
     Indication: BODY TINEA
     Dosage: 250 MG, QD, ORAL
     Route: 048
     Dates: start: 20040830, end: 20041007
  2. CELEXA [Concomitant]
  3. LOTRISONE [Concomitant]

REACTIONS (1)
  - AGEUSIA [None]
